FAERS Safety Report 22648815 (Version 2)
Quarter: 2023Q2

REPORT INFORMATION
  Report Type: Report from Study
  Country: US (occurrence: US)
  Receive Date: 20230628
  Receipt Date: 20230629
  Transmission Date: 20230722
  Serious: No
  Sender: FDA-Public Use
  Company Number: US-002147023-NVSC2023US147136

PATIENT
  Sex: Male

DRUGS (1)
  1. PRAMIPEXOLE [Suspect]
     Active Substance: PRAMIPEXOLE
     Indication: Product used for unknown indication
     Dosage: UNK
     Route: 065

REACTIONS (6)
  - Tremor [Unknown]
  - Muscle spasms [Unknown]
  - Anxiety [Unknown]
  - Dyspnoea [Unknown]
  - Compulsions [Unknown]
  - Product dose omission issue [Unknown]
